FAERS Safety Report 4401276-7 (Version None)
Quarter: 2004Q3

REPORT INFORMATION
  Report Type: 
  Country: None (occurrence: None)
  Receive Date: 20040907
  Receipt Date: 20040204
  Transmission Date: 20050211
  Serious: No
  Sender: FDA-Public Use
  Company Number: US-BRISTOL-MYERS SQUIBB COMPANY-12495891

PATIENT
  Age: 73 Year
  Sex: Female
  Weight: 50 kg

DRUGS (7)
  1. COUMADIN [Suspect]
     Indication: ATRIAL FIBRILLATION
     Route: 048
  2. COUMADIN [Suspect]
     Indication: ATRIAL TACHYCARDIA
     Route: 048
  3. RISAMOL [Concomitant]
  4. VITAMIN B COMPLEX CAP [Concomitant]
  5. POTASSIUM [Concomitant]
  6. CALCIUM [Concomitant]
  7. VITAMIN C [Concomitant]

REACTIONS (1)
  - LABORATORY TEST ABNORMAL [None]
